FAERS Safety Report 7675476-7 (Version None)
Quarter: 2011Q3

REPORT INFORMATION
  Report Type: 
  Country: None (occurrence: None)
  Receive Date: 20110810
  Receipt Date: 20110805
  Transmission Date: 20111222
  Serious: Yes (Other)
  Sender: FDA-Public Use
  Company Number: US-AMGEN-USASP2011006097

PATIENT
  Age: 69 Year
  Sex: Male
  Weight: 110.93 kg

DRUGS (5)
  1. NPLATE [Suspect]
     Indication: IDIOPATHIC THROMBOCYTOPENIC PURPURA
     Dosage: 125 A?G, Q2WK
     Dates: start: 20100407
  2. DOXAZOSIN MESYLATE [Concomitant]
  3. LASIX [Concomitant]
  4. VITAMIN B12                        /00056201/ [Concomitant]
     Dosage: 1 MG, QD
     Route: 060
     Dates: start: 20100429
  5. PREDNISONE [Concomitant]

REACTIONS (11)
  - CONSTIPATION [None]
  - BLOOD PRESSURE INCREASED [None]
  - PAIN IN EXTREMITY [None]
  - FLUID RETENTION [None]
  - FATIGUE [None]
  - PLATELET COUNT DECREASED [None]
  - ECCHYMOSIS [None]
  - OEDEMA PERIPHERAL [None]
  - WEIGHT DECREASED [None]
  - DISCOMFORT [None]
  - ARTHRALGIA [None]
